FAERS Safety Report 5967471-0 (Version None)
Quarter: 2008Q4

REPORT INFORMATION
  Report Type: 
  Country: None (occurrence: None)
  Receive Date: 20081125
  Receipt Date: 20081117
  Transmission Date: 20090506
  Serious: Yes (Other)
  Sender: FDA-Public Use
  Company Number: US-PFIZER INC-2008084615

PATIENT
  Age: 47 Year
  Sex: Male

DRUGS (3)
  1. XALATAN [Suspect]
     Indication: GLAUCOMA
     Route: 047
     Dates: start: 20050801
  2. INTERFERON ALFA [Interacting]
  3. PROLEUKIN [Interacting]
     Dates: start: 20080801

REACTIONS (5)
  - DRUG INEFFECTIVE [None]
  - DRUG INTERACTION [None]
  - INTRAOCULAR PRESSURE INCREASED [None]
  - MALIGNANT MELANOMA [None]
  - VISUAL FIELD DEFECT [None]
